FAERS Safety Report 21644700 (Version 1)
Quarter: 2022Q4

REPORT INFORMATION
  Report Type: Spontaneous
  Country: US (occurrence: US)
  Receive Date: 20221125
  Receipt Date: 20221125
  Transmission Date: 20230113
  Serious: Yes (Other)
  Sender: FDA-Public Use
  Company Number: US-UCBSA-2022066678

PATIENT
  Sex: Female

DRUGS (1)
  1. BRIVIACT [Suspect]
     Active Substance: BRIVARACETAM
     Indication: Seizure
     Dosage: 50 MILLIGRAM, UNK
     Dates: start: 20201101

REACTIONS (7)
  - Bipolar disorder [Recovered/Resolved]
  - Dizziness [Unknown]
  - Nausea [Unknown]
  - Impaired driving ability [Unknown]
  - Malaise [Unknown]
  - Product distribution issue [Unknown]
  - Therapeutic response unexpected [Unknown]
